FAERS Safety Report 12956041 (Version 2)
Quarter: 2019Q2

REPORT INFORMATION
  Report Type: Spontaneous
  Country: US (occurrence: US)
  Receive Date: 20161118
  Receipt Date: 20190415
  Transmission Date: 20190711
  Serious: No
  Sender: FDA-Public Use
  Company Number: US-009507513-1611USA007846

PATIENT
  Age: 17 Year
  Sex: Female
  Weight: 74.83 kg

DRUGS (1)
  1. NEXPLANON [Suspect]
     Active Substance: ETONOGESTREL
     Indication: CONTRACEPTION
     Dosage: 3 YEAR IMPLANT, IMPLANT IN LEFT ARM
     Route: 059
     Dates: start: 20160912

REACTIONS (11)
  - Headache [Unknown]
  - Back pain [Unknown]
  - Breast tenderness [Unknown]
  - Dysmenorrhoea [Unknown]
  - Oropharyngeal pain [Unknown]
  - Nausea [Unknown]
  - Menorrhagia [Unknown]
  - Mood altered [Unknown]
  - Dizziness [Unknown]
  - Dyspepsia [Unknown]
  - Abdominal discomfort [Unknown]

NARRATIVE: CASE EVENT DATE: 20161115
